FAERS Safety Report 6485572-8 (Version None)
Quarter: 2009Q4

REPORT INFORMATION
  Report Type: 
  Country: None (occurrence: None)
  Receive Date: 20091204
  Receipt Date: 20091125
  Transmission Date: 20100525
  Serious: Yes (Other)
  Sender: FDA-Public Use
  Company Number: 2009SP029013

PATIENT
  Age: 47 Year
  Sex: Female

DRUGS (10)
  1. MIRTAZAPINE [Suspect]
     Indication: DEPRESSION
     Dosage: 15 MG; QD; PO
     Route: 048
     Dates: start: 20090925, end: 20091002
  2. AMOXAPINE [Concomitant]
  3. TRAZODONE HYDROCHLORIDE [Suspect]
  4. TRAZODONE HYDROCHLORIDE [Concomitant]
  5. AMOXAPINE [Concomitant]
  6. AMOXAPINE [Concomitant]
  7. SULPRIDE [Concomitant]
  8. FUROSEMIDE [Concomitant]
  9. LORAZEPAM [Concomitant]
  10. LORAZEPAM [Concomitant]

REACTIONS (8)
  - ANTINUCLEAR ANTIBODY POSITIVE [None]
  - ARTHRALGIA [None]
  - FACE OEDEMA [None]
  - GENERALISED OEDEMA [None]
  - MALAISE [None]
  - MUSCULOSKELETAL STIFFNESS [None]
  - URINE OUTPUT DECREASED [None]
  - VIRAL INFECTION [None]
